FAERS Safety Report 4624011-6 (Version None)
Quarter: 2005Q1

REPORT INFORMATION
  Report Type: 
  Country: None (occurrence: None)
  Receive Date: 20050329
  Receipt Date: 20050318
  Transmission Date: 20050727
  Serious: Yes (Hospitalization)
  Sender: FDA-Public Use
  Company Number: 2005-00351

PATIENT
  Age: 68 Year
  Sex: Female
  Weight: 84 kg

DRUGS (10)
  1. VELCADE [Suspect]
     Indication: MULTIPLE MYELOMA
     Dosage: 2.40 MG, 2/WEEK, INTRAVENOUS
     Route: 042
     Dates: start: 20041115, end: 20041209
  2. ACETYLSALICYLIC ACID SRT [Concomitant]
  3. BISOPROLOL FUMARATE [Concomitant]
  4. LEVOTHYROXINE SODIUM [Concomitant]
  5. VERAPAMIL [Concomitant]
  6. SIMVASTATIN [Concomitant]
  7. CLOPIDOGREL [Concomitant]
  8. EPO INJECTION [Concomitant]
  9. NEXIUM [Concomitant]
  10. DIOVAN HCT [Concomitant]

REACTIONS (27)
  - ANGINA PECTORIS [None]
  - BACTERIAL SEPSIS [None]
  - BLOOD IMMUNOGLOBULIN A DECREASED [None]
  - BLOOD IMMUNOGLOBULIN G INCREASED [None]
  - BLOOD IMMUNOGLOBULIN M DECREASED [None]
  - BONE PAIN [None]
  - CARDIAC FAILURE CONGESTIVE [None]
  - CARDIAC MURMUR [None]
  - DEHYDRATION [None]
  - DYSPNOEA [None]
  - GASTRITIS [None]
  - GENERAL PHYSICAL HEALTH DETERIORATION [None]
  - HAEMATOCRIT DECREASED [None]
  - HAEMOGLOBIN DECREASED [None]
  - HIATUS HERNIA [None]
  - HYPERVISCOSITY SYNDROME [None]
  - HYPOTENSION [None]
  - LEUKOPENIA [None]
  - LIGHT CHAIN ANALYSIS INCREASED [None]
  - MYALGIA [None]
  - OEDEMA PERIPHERAL [None]
  - OESOPHAGITIS [None]
  - RENAL FAILURE [None]
  - THROMBOCYTOPENIA [None]
  - URINARY RETENTION [None]
  - VERTIGO [None]
  - WEIGHT INCREASED [None]
